FAERS Safety Report 9227782 (Version 1)
Quarter: 2013Q2

REPORT INFORMATION
  Report Type: Spontaneous
  Country: MX (occurrence: MX)
  Receive Date: 20130412
  Receipt Date: 20130412
  Transmission Date: 20140414
  Serious: Yes (Other)
  Sender: FDA-Public Use
  Company Number: PHHY2013MX034964

PATIENT
  Age: 89 Year
  Sex: Male

DRUGS (8)
  1. TEGRETOL [Suspect]
     Indication: EPILEPSY
     Dosage: 200 MG, UNK
     Route: 048
     Dates: start: 197006
  2. TEGRETOL [Suspect]
     Dosage: 400 MG, UNK
  3. PANTOPRAZOLE [Concomitant]
     Indication: GASTRITIS
     Dosage: 1 UKN, QD
     Dates: start: 201009
  4. PINAVERIO [Concomitant]
     Indication: GASTRIC DISORDER
     Dosage: 2 UKN, UNK
     Dates: start: 2007
  5. LOSARTAN [Concomitant]
     Indication: HYPERTENSION
     Dosage: 2 UKN, QD
     Dates: start: 201210
  6. FUROSEMIDE [Concomitant]
     Indication: DIURETIC THERAPY
     Dosage: 2 UKN, QD
     Dates: start: 2010
  7. MIRCERA [Concomitant]
     Indication: BONE MARROW FAILURE
     Dosage: ONE INJECTION EVERY 15 DAYS
  8. B COMPLEX [Concomitant]
     Indication: BONE MARROW FAILURE
     Dosage: UNK UKN, UNK
     Dates: start: 201211

REACTIONS (7)
  - Respiratory arrest [Recovered/Resolved]
  - Renal failure chronic [Not Recovered/Not Resolved]
  - Renal impairment [Not Recovered/Not Resolved]
  - Renal failure [Not Recovered/Not Resolved]
  - Convulsion [Recovering/Resolving]
  - Accident [Recovered/Resolved]
  - Head injury [Recovered/Resolved]
